FAERS Safety Report 6408106-2 (Version None)
Quarter: 2009Q4

REPORT INFORMATION
  Report Type: 
  Country: None (occurrence: None)
  Receive Date: 20091016
  Receipt Date: 20091008
  Transmission Date: 20100525
  Serious: Yes (Other)
  Sender: FDA-Public Use
  Company Number: OMPQ-NO-0910S-0881

PATIENT
  Age: 79 Year
  Sex: Male

DRUGS (1)
  1. OMNIPAQUE 300 [Suspect]
     Indication: LUNG NEOPLASM MALIGNANT
     Dosage: 100 ML, SINGLE DOSE, I.V.
     Route: 042
     Dates: start: 20091001, end: 20091001

REACTIONS (3)
  - DYSPNOEA [None]
  - INTERSTITIAL LUNG DISEASE [None]
  - PYREXIA [None]
